FAERS Safety Report 5511514-5 (Version None)
Quarter: 2007Q4

REPORT INFORMATION
  Report Type: 
  Country: None (occurrence: None)
  Receive Date: 20071109
  Receipt Date: 20071031
  Transmission Date: 20080405
  Serious: Yes (Death)
  Sender: FDA-Public Use
  Company Number: B0494063A

PATIENT
  Age: 80 Year
  Sex: Female

DRUGS (11)
  1. ARIXTRA [Suspect]
     Indication: DRUG USE FOR UNKNOWN INDICATION
     Dosage: 2.5MG PER DAY
     Route: 058
     Dates: start: 20070909, end: 20071006
  2. AUGMENTIN '125' [Suspect]
     Indication: DRUG USE FOR UNKNOWN INDICATION
     Dosage: 3G PER DAY
     Route: 042
     Dates: start: 20070917, end: 20070921
  3. KEPPRA [Suspect]
     Dosage: 1000MG PER DAY
     Dates: start: 20070914, end: 20071002
  4. L THYROXINE [Suspect]
     Dosage: 23DROP PER DAY
     Route: 048
     Dates: start: 20070920
  5. TAZOCILLINE [Suspect]
     Dosage: 3UNIT PER DAY
     Route: 042
     Dates: start: 20070908
  6. LASILIX [Suspect]
     Dosage: 40MG PER DAY
     Route: 042
     Dates: start: 20070909, end: 20071006
  7. SEROPRAM [Suspect]
     Dosage: 20MG PER DAY
     Route: 042
     Dates: start: 20070908, end: 20070930
  8. TARGOCID [Suspect]
     Dosage: 800MG PER DAY
     Route: 042
     Dates: start: 20070908, end: 20070929
  9. EPITOMAX [Concomitant]
  10. DEPAKENE [Concomitant]
  11. OMEPRAZOLE [Concomitant]

REACTIONS (4)
  - ANAEMIA [None]
  - BONE MARROW FAILURE [None]
  - LEUKOPENIA [None]
  - THROMBOCYTOPENIA [None]
